FAERS Safety Report 6949741-2 (Version None)
Quarter: 2010Q3

REPORT INFORMATION
  Report Type: 
  Country: None (occurrence: None)
  Receive Date: 20100828
  Receipt Date: 20100108
  Transmission Date: 20110219
  Serious: No
  Sender: FDA-Public Use
  Company Number: US-ABBOTT-10P-163-0618928-00

PATIENT
  Sex: Female
  Weight: 55.842 kg

DRUGS (4)
  1. NIASPAN [Suspect]
     Indication: BLOOD CHOLESTEROL INCREASED
     Dosage: EVERY NIGHT
     Dates: start: 20091201
  2. NIASPAN [Suspect]
     Dosage: EVERY NIGHT
  3. SYNTHROID [Concomitant]
     Indication: HYPOTHYROIDISM
  4. VITAMINS [Concomitant]
     Indication: PRODUCT USED FOR UNKNOWN INDICATION

REACTIONS (2)
  - DYSPEPSIA [None]
  - HEART RATE INCREASED [None]
